FAERS Safety Report 7436154-2 (Version None)
Quarter: 2011Q2

REPORT INFORMATION
  Report Type: 
  Country: None (occurrence: None)
  Receive Date: 20110425
  Receipt Date: 20101129
  Transmission Date: 20111010
  Serious: Yes (Hospitalization)
  Sender: FDA-Public Use
  Company Number: JP-BAYER-201015248BYL

PATIENT
  Age: 75 Year
  Sex: Male
  Weight: 71 kg

DRUGS (10)
  1. PLAVIX [Suspect]
     Indication: ANTIPLATELET THERAPY
     Dosage: DAILY DOSE 75 MG
     Route: 048
     Dates: start: 20100706, end: 20100719
  2. ASPIRIN [Suspect]
     Indication: ANTIPLATELET THERAPY
     Route: 048
     Dates: start: 20100706
  3. TANATRIL [Suspect]
     Indication: CARDIOVASCULAR EVENT PROPHYLAXIS
     Dosage: DAILY DOSE 2.5 MG
     Route: 048
     Dates: start: 20100707, end: 20100721
  4. MAGLAX [Suspect]
     Indication: CONSTIPATION
     Dosage: 330 MG, TIW
     Route: 048
     Dates: start: 20100707
  5. PARIET [Suspect]
     Indication: PROPHYLAXIS AGAINST GASTROINTESTINAL ULCER
     Dosage: DAILY DOSE 10 MG
     Route: 048
     Dates: start: 20100707, end: 20100718
  6. AMLODIPINE [Concomitant]
     Indication: PRODUCT USED FOR UNKNOWN INDICATION
     Dosage: DAILY DOSE 5 MG
     Route: 048
     Dates: start: 20100705, end: 20100803
  7. LIPITOR [Suspect]
     Indication: BLOOD CHOLESTEROL INCREASED
     Dosage: DAILY DOSE 10 MG
     Route: 048
     Dates: start: 20100707, end: 20100721
  8. ARTIST [Suspect]
     Indication: CARDIOVASCULAR EVENT PROPHYLAXIS
     Dosage: DAILY DOSE 2.5 MG
     Route: 048
     Dates: start: 20100708, end: 20100720
  9. FLUITRAN [Concomitant]
     Indication: PRODUCT USED FOR UNKNOWN INDICATION
     Dosage: DAILY DOSE 1 MG
     Route: 048
     Dates: start: 20100705
  10. SHOUSAIKOTOU [Concomitant]
     Indication: PRODUCT USED FOR UNKNOWN INDICATION
     Dosage: DAILY DOSE 7.5 G
     Route: 048
     Dates: start: 20100705

REACTIONS (2)
  - PLATELET COUNT DECREASED [None]
  - NEUTROPHIL COUNT DECREASED [None]
